FAERS Safety Report 8944806 (Version 3)
Quarter: 2015Q2

REPORT INFORMATION
  Report Type: Spontaneous
  Country: US (occurrence: US)
  Receive Date: 20121204
  Receipt Date: 20150528
  Transmission Date: 20150821
  Serious: Yes (Hospitalization, Other)
  Sender: FDA-Public Use
  Company Number: US-AMGEN-USASP2012064193

PATIENT
  Age: 43 Year
  Sex: Male
  Weight: 126.98 kg

DRUGS (1)
  1. ENBREL [Suspect]
     Active Substance: ETANERCEPT
     Indication: PSORIASIS
     Dosage: 50 MG, QWK
     Route: 065
     Dates: start: 201205, end: 201504

REACTIONS (26)
  - Finger deformity [Unknown]
  - Contusion [Recovered/Resolved]
  - Injection site extravasation [Recovered/Resolved]
  - Injection site vesicles [Recovered/Resolved]
  - Joint injury [Recovered/Resolved]
  - Nausea [Recovered/Resolved]
  - Intentional product misuse [Not Recovered/Not Resolved]
  - Swelling [Recovered/Resolved]
  - Diarrhoea [Recovered/Resolved]
  - Blood testosterone decreased [Unknown]
  - Neuralgia [Unknown]
  - Accident at work [Recovered/Resolved]
  - Thrombosis [Recovered/Resolved]
  - Neck injury [Recovered/Resolved]
  - Pulmonary embolism [Recovered/Resolved]
  - Head injury [Recovered/Resolved]
  - Injection site mass [Not Recovered/Not Resolved]
  - Peripheral swelling [Unknown]
  - Tooth avulsion [Recovered/Resolved]
  - Hypoaesthesia [Unknown]
  - Musculoskeletal pain [Not Recovered/Not Resolved]
  - Injection site pain [Recovered/Resolved]
  - Injection site haemorrhage [Recovered/Resolved]
  - Inappropriate schedule of drug administration [Recovered/Resolved]
  - Limb injury [Recovered/Resolved]
  - Psoriasis [Not Recovered/Not Resolved]

NARRATIVE: CASE EVENT DATE: 2012
